FAERS Safety Report 6386058-1 (Version None)
Quarter: 2009Q4

REPORT INFORMATION
  Report Type: 
  Country: None (occurrence: None)
  Receive Date: 20091002
  Receipt Date: 20081103
  Transmission Date: 20100525
  Serious: Yes (Other)
  Sender: FDA-Public Use
  Company Number: US-ASTRAZENECA-2008UW24716

PATIENT
  Age: 81 Year
  Sex: Female

DRUGS (4)
  1. ARIMIDEX [Suspect]
     Route: 048
     Dates: start: 20060701
  2. GLYBURIDE [Concomitant]
  3. CALCIUM [Concomitant]
  4. BONIVA [Concomitant]

REACTIONS (3)
  - CARPAL TUNNEL DECOMPRESSION [None]
  - HYPOAESTHESIA [None]
  - PAIN IN EXTREMITY [None]
